FAERS Safety Report 22091112 (Version 1)
Quarter: 2023Q1

REPORT INFORMATION
  Report Type: Other
  Country: AU (occurrence: AU)
  Receive Date: 20230314
  Receipt Date: 20230314
  Transmission Date: 20230418
  Serious: No
  Sender: FDA-Public Use
  Company Number: AU-TOLMAR, INC.-23AU038920

PATIENT
  Sex: Male

DRUGS (1)
  1. ELIGARD [Suspect]
     Active Substance: LEUPROLIDE ACETATE
     Indication: Prostate cancer
     Dosage: 22.5 MILLIGRAM, Q 3 MONTH
     Route: 058
     Dates: start: 2022

REACTIONS (5)
  - Mood swings [Unknown]
  - Hot flush [Unknown]
  - Hyperhidrosis [Unknown]
  - Lethargy [Unknown]
  - Weight increased [Unknown]

NARRATIVE: CASE EVENT DATE: 20220101
